FAERS Safety Report 7541625-4 (Version None)
Quarter: 2011Q2

REPORT INFORMATION
  Report Type: 
  Country: None (occurrence: None)
  Receive Date: 20110613
  Receipt Date: 20110531
  Transmission Date: 20111010
  Serious: Yes (Hospitalization)
  Sender: FDA-Public Use
  Company Number: EC-JNJFOC-20110601045

PATIENT
  Age: 45 Year
  Sex: Female
  Weight: 83.5 kg

DRUGS (2)
  1. MEDROXYPROGESTERONE ACETATE [Suspect]
     Indication: CONTRACEPTION
     Route: 030
     Dates: start: 20100908, end: 20100908
  2. SIMPONI [Suspect]
     Indication: RHEUMATOID ARTHRITIS
     Route: 058
     Dates: start: 20100915, end: 20110224

REACTIONS (1)
  - HYSTERECTOMY [None]
